FAERS Safety Report 8619131-5 (Version None)
Quarter: 2012Q3

REPORT INFORMATION
  Report Type: 
  Country: None (occurrence: None)
  Receive Date: 20120824
  Receipt Date: 20120822
  Transmission Date: 20120928
  Serious: Yes (Life-Threatening, Hospitalization, Other)
  Sender: FDA-Public Use
  Company Number: PHHY2011JP91553

PATIENT
  Sex: Male
  Weight: 13 kg

DRUGS (6)
  1. SIMULECT [Suspect]
     Dosage: 10 MG, UNK
     Route: 042
     Dates: start: 20101128, end: 20101128
  2. MYCOPHENOLATE MOFETIL (CELLCEPT) [Suspect]
     Indication: RENAL TRANSPLANT
     Dosage: 250 MG, UNK
     Route: 048
     Dates: start: 20101123, end: 20110509
  3. SIMULECT [Suspect]
     Dosage: 10 MG, UNK
     Route: 042
     Dates: start: 20101124, end: 20101124
  4. MEDROL [Suspect]
     Indication: RENAL TRANSPLANT
     Dosage: 20 TO 4 MG DAILY, UNK
     Route: 048
     Dates: start: 20101124
  5. PROGRAF [Suspect]
     Indication: RENAL TRANSPLANT
     Dosage: 0.6 MG, UNK
     Route: 042
     Dates: start: 20101124
  6. PROGRAF [Suspect]
     Dosage: 11.6 MG, UNK
     Route: 048
     Dates: start: 20101203

REACTIONS (5)
  - POST TRANSPLANT LYMPHOPROLIFERATIVE DISORDER [None]
  - KIDNEY TRANSPLANT REJECTION [None]
  - BLOOD CREATINE INCREASED [None]
  - INTESTINAL PERFORATION [None]
  - ABDOMINAL PAIN [None]
